FAERS Safety Report 7350786-1 (Version None)
Quarter: 2011Q1

REPORT INFORMATION
  Report Type: 
  Country: None (occurrence: None)
  Receive Date: 20110314
  Receipt Date: 20110308
  Transmission Date: 20110831
  Serious: Yes (Other)
  Sender: FDA-Public Use
  Company Number: US-CTI_01324_2011

PATIENT
  Sex: Female

DRUGS (3)
  1. FACTIVE [Suspect]
     Indication: BRONCHITIS CHRONIC
     Dosage: DF
     Dates: start: 20101205, end: 20101210
  2. FACTIVE [Suspect]
     Indication: PNEUMONIA
     Dosage: DF
     Dates: start: 20101205, end: 20101210
  3. SYNTHROID [Concomitant]
     Indication: THYROID DISORDER
     Dosage: DF

REACTIONS (5)
  - MALAISE [None]
  - DRUG INEFFECTIVE [None]
  - DYSPNOEA [None]
  - TENDON RUPTURE [None]
  - PRODUCT QUALITY ISSUE [None]
